FAERS Safety Report 18470693 (Version 4)
Quarter: 2021Q1

REPORT INFORMATION
  Report Type: Spontaneous
  Country: CA (occurrence: CA)
  Receive Date: 20201106
  Receipt Date: 20210227
  Transmission Date: 20210419
  Serious: Yes (Other)
  Sender: FDA-Public Use
  Company Number: CA-CELLTRION INC.-2019CA025631

PATIENT

DRUGS (28)
  1. INFLECTRA [Suspect]
     Active Substance: INFLIXIMAB-DYYB
     Dosage: 500 MG OR 5 MG/KG, 0, 2, 6  WEEKS, THEN EVERY 8 WEEKS
     Route: 042
     Dates: start: 20210217
  2. BUPROPION. [Concomitant]
     Active Substance: BUPROPION
     Dosage: UNK
     Route: 065
  3. DIPHENHYDRAMINE. [Concomitant]
     Active Substance: DIPHENHYDRAMINE
     Dosage: 25 MG
     Dates: start: 20200505
  4. DIPHENHYDRAMINE. [Concomitant]
     Active Substance: DIPHENHYDRAMINE
     Dosage: 25 MG
     Route: 042
     Dates: start: 20200629, end: 20200629
  5. METFORMIN [Concomitant]
     Active Substance: METFORMIN HYDROCHLORIDE
     Dosage: UNK
     Route: 048
  6. INFLECTRA [Suspect]
     Active Substance: INFLIXIMAB-DYYB
     Dosage: 500 MG OR 5 MG/KG, 0, 2, 6  WEEKS, THEN EVERY 8 WEEKS
     Route: 042
     Dates: start: 20200629
  7. INFLECTRA [Suspect]
     Active Substance: INFLIXIMAB-DYYB
     Dosage: 500 MG OR 5 MG/KG, 0, 2, 6  WEEKS, THEN EVERY 8 WEEKS
     Route: 042
     Dates: start: 20200819
  8. DIPHENHYDRAMINE. [Concomitant]
     Active Substance: DIPHENHYDRAMINE
     Dosage: 25 MG
     Route: 042
     Dates: start: 20200819, end: 20200819
  9. INFLECTRA [Suspect]
     Active Substance: INFLIXIMAB-DYYB
     Indication: ANKYLOSING SPONDYLITIS
     Dosage: 500 MG OR 5 MG/KG, 0, 2, 6  WEEKS, THEN EVERY 8 WEEKS
     Route: 042
     Dates: start: 20190919
  10. INFLECTRA [Suspect]
     Active Substance: INFLIXIMAB-DYYB
     Dosage: 500 MG OR 5 MG/KG, 0, 2, 6  WEEKS, THEN EVERY 8 WEEKS
     Route: 042
     Dates: start: 20191030
  11. DIPHENHYDRAMINE. [Concomitant]
     Active Substance: DIPHENHYDRAMINE
     Dosage: 25 MG
     Route: 042
     Dates: start: 20210217, end: 20210217
  12. FOLIC ACID. [Concomitant]
     Active Substance: FOLIC ACID
     Dosage: UNK
     Route: 065
  13. INFLECTRA [Suspect]
     Active Substance: INFLIXIMAB-DYYB
     Dosage: 500 MG OR 5 MG/KG, 0, 2, 6  WEEKS, THEN EVERY 8 WEEKS
     Route: 042
     Dates: start: 20200219
  14. INFLECTRA [Suspect]
     Active Substance: INFLIXIMAB-DYYB
     Dosage: 500 MG OR 5 MG/KG, 0, 2, 6  WEEKS, THEN EVERY 8 WEEKS
     Route: 042
     Dates: start: 20200505
  15. CONCERTA [Concomitant]
     Active Substance: METHYLPHENIDATE HYDROCHLORIDE
     Dosage: UNK
     Route: 065
  16. DEPO?PROVERA [Concomitant]
     Active Substance: MEDROXYPROGESTERONE ACETATE
     Dosage: UNK, EVERY 3 MONTHS
     Route: 058
  17. DIPHENHYDRAMINE. [Concomitant]
     Active Substance: DIPHENHYDRAMINE
     Indication: PREMEDICATION
     Dosage: 25 MG
     Dates: start: 20200219
  18. VITAMIN B12 [Concomitant]
     Active Substance: CYANOCOBALAMIN
     Dosage: UNK, 1X/DAY
     Route: 048
  19. INFLECTRA [Suspect]
     Active Substance: INFLIXIMAB-DYYB
     Dosage: 500 MG OR 5 MG/KG, 0, 2, 6  WEEKS, THEN EVERY 8 WEEKS
     Route: 042
     Dates: start: 20191224
  20. INFLECTRA [Suspect]
     Active Substance: INFLIXIMAB-DYYB
     Dosage: 500 MG OR 5 MG/KG, 0, 2, 6  WEEKS, THEN EVERY 8 WEEKS
     Route: 042
     Dates: start: 20201028
  21. ARIPIPRAZOLE. [Concomitant]
     Active Substance: ARIPIPRAZOLE
     Dosage: UNK
     Route: 048
  22. METHOTREXATE. [Concomitant]
     Active Substance: METHOTREXATE
     Dosage: 2.5 MG ONCE A WEEK
     Route: 048
  23. SULFASALAZINE. [Concomitant]
     Active Substance: SULFASALAZINE
     Dosage: UNK
     Route: 048
  24. VENLAFAXINE [Concomitant]
     Active Substance: VENLAFAXINE HYDROCHLORIDE
     Dosage: UNK
     Route: 065
  25. INFLECTRA [Suspect]
     Active Substance: INFLIXIMAB-DYYB
     Dosage: 500 MG OR 5 MG/KG, 0, 2, 6 WEEKS, THEN EVERY 8 WEEKS
     Route: 042
     Dates: start: 20191224
  26. DIPHENHYDRAMINE. [Concomitant]
     Active Substance: DIPHENHYDRAMINE
     Dosage: 25 MG
     Route: 042
     Dates: start: 20201028, end: 20201028
  27. INFLECTRA [Suspect]
     Active Substance: INFLIXIMAB-DYYB
     Indication: PSORIASIS
     Dosage: 500 MG OR 5 MG/KG,  0, 2, 6  WEEKS, THEN EVERY 8 WEEKS
     Route: 042
     Dates: start: 20191001
  28. INFLECTRA [Suspect]
     Active Substance: INFLIXIMAB-DYYB
     Dosage: 500 MG OR 5 MG/KG, 0, 2, 6  WEEKS, THEN EVERY 8 WEEKS
     Route: 042
     Dates: start: 20201221

REACTIONS (8)
  - Type 2 diabetes mellitus [Unknown]
  - Inappropriate schedule of product administration [Unknown]
  - Fibromyalgia [Unknown]
  - Heart rate increased [Unknown]
  - Pruritus [Recovered/Resolved]
  - Blood pressure increased [Unknown]
  - Malaise [Recovering/Resolving]
  - Arthralgia [Not Recovered/Not Resolved]

NARRATIVE: CASE EVENT DATE: 20191001
